FAERS Safety Report 21499455 (Version 1)
Quarter: 2022Q4

REPORT INFORMATION
  Report Type: Other
  Country: CH (occurrence: CH)
  Receive Date: 20221024
  Receipt Date: 20221024
  Transmission Date: 20230113
  Serious: Yes (Hospitalization)
  Sender: FDA-Public Use
  Company Number: None

PATIENT
  Age: 79 Year
  Sex: Male

DRUGS (27)
  1. IOHEXOL [Suspect]
     Active Substance: IOHEXOL
     Indication: Ischaemic cerebral infarction
     Dosage: UNK UNK, SINGLE
     Route: 042
     Dates: start: 20220914, end: 20220914
  2. IOHEXOL [Suspect]
     Active Substance: IOHEXOL
     Indication: Computerised tomogram head
  3. IOHEXOL [Suspect]
     Active Substance: IOHEXOL
     Indication: Facial paralysis
  4. IOHEXOL [Suspect]
     Active Substance: IOHEXOL
     Indication: Dysarthria
  5. IPILIMUMAB [Suspect]
     Active Substance: IPILIMUMAB
     Indication: Sarcomatoid mesothelioma
     Dosage: UNK
     Route: 065
     Dates: start: 20220906, end: 20220906
  6. TRELEGY ELLIPTA [Suspect]
     Active Substance: FLUTICASONE FUROATE\UMECLIDINIUM BROMIDE\VILANTEROL TRIFENATATE
     Indication: Product used for unknown indication
     Route: 065
  7. AMOXICILLIN\CLAVULANATE POTASSIUM [Suspect]
     Active Substance: AMOXICILLIN\CLAVULANATE POTASSIUM
     Indication: Product used for unknown indication
     Dosage: UNK
     Route: 042
     Dates: start: 20220913, end: 20220914
  8. CEFTRIAXONE [Suspect]
     Active Substance: CEFTRIAXONE
     Indication: Product used for unknown indication
     Dosage: 2 GM, SINGLE
     Route: 065
     Dates: start: 20220915, end: 20220915
  9. CLARITHROMYCIN [Suspect]
     Active Substance: CLARITHROMYCIN
     Indication: Product used for unknown indication
     Dosage: 500 MG, SINGLE
     Route: 065
     Dates: start: 20220915, end: 20220915
  10. LEVOFLOXACIN [Suspect]
     Active Substance: LEVOFLOXACIN
     Indication: Product used for unknown indication
     Dosage: 500 MG, BID
     Route: 065
     Dates: start: 20220915, end: 20220916
  11. MAGNESIUM SULFATE [Suspect]
     Active Substance: MAGNESIUM SULFATE
     Indication: Product used for unknown indication
     Dosage: UNK UNK, SINGLE
     Route: 042
     Dates: start: 20220914, end: 20220914
  12. HALDOL [Suspect]
     Active Substance: HALOPERIDOL
     Indication: Product used for unknown indication
     Dosage: 0.5 MG, SINGLE
     Route: 058
     Dates: start: 20220914, end: 20220914
  13. ALBUTEROL SULFATE\IPRATROPIUM BROMIDE [Concomitant]
     Active Substance: ALBUTEROL SULFATE\IPRATROPIUM BROMIDE
     Dosage: UNK
  14. MORPHINE SULFATE [Concomitant]
     Active Substance: MORPHINE SULFATE
     Dosage: UNK
  15. METAMUCIL [Concomitant]
     Active Substance: PLANTAGO SEED
     Route: 048
  16. ALBUTEROL SULFATE\IPRATROPIUM BROMIDE [Concomitant]
     Active Substance: ALBUTEROL SULFATE\IPRATROPIUM BROMIDE
     Dosage: UNK
     Route: 050
     Dates: start: 20220913, end: 20220913
  17. ENOXAPARIN SODIUM [Concomitant]
     Active Substance: ENOXAPARIN SODIUM
     Dosage: UNK
     Route: 058
     Dates: start: 20220913
  18. OXAZEPAM [Concomitant]
     Active Substance: OXAZEPAM
     Dosage: UNK
     Route: 048
     Dates: start: 20220913, end: 20220913
  19. LORAZEPAM [Concomitant]
     Active Substance: LORAZEPAM
     Dosage: UNK UNK, SINGLE
     Dates: start: 20220914, end: 20220914
  20. MORPHINE [Concomitant]
     Active Substance: MORPHINE
     Dosage: UNK
     Route: 058
     Dates: start: 20220914, end: 20220914
  21. MORPHINE HYDROCHLORIDE [Concomitant]
     Active Substance: MORPHINE HYDROCHLORIDE
     Dosage: UNK
     Route: 048
     Dates: start: 20220914, end: 20220914
  22. ASPIRIN DL-LYSINE [Concomitant]
     Active Substance: ASPIRIN DL-LYSINE
     Dosage: UNK
     Dates: start: 20220915
  23. MOVICOL [Concomitant]
     Active Substance: POLYETHYLENE GLYCOL 3350\POTASSIUM CHLORIDE\SODIUM BICARBONATE\SODIUM CHLORIDE
     Dosage: UNK
     Dates: start: 20220914, end: 20220914
  24. Riopan [Concomitant]
     Dosage: UNK
     Dates: start: 20220914, end: 20220914
  25. SODIUM PICOSULFATE [Concomitant]
     Active Substance: SODIUM PICOSULFATE
     Dosage: UNK
     Dates: start: 20220915
  26. PREDNISONE [Concomitant]
     Active Substance: PREDNISONE
     Dosage: UNK
     Route: 048
     Dates: start: 20220915, end: 20220919
  27. NYSTATIN [Concomitant]
     Active Substance: NYSTATIN
     Dosage: UNK
     Route: 048
     Dates: start: 20220915

REACTIONS (2)
  - Electrocardiogram QT prolonged [Recovered/Resolved]
  - Rash erythematous [Not Recovered/Not Resolved]

NARRATIVE: CASE EVENT DATE: 20220915
